FAERS Safety Report 24622998 (Version 1)
Quarter: 2024Q4

REPORT INFORMATION
  Report Type: Spontaneous
  Country: BR (occurrence: BR)
  Receive Date: 20241115
  Receipt Date: 20241115
  Transmission Date: 20250115
  Serious: Yes (Hospitalization)
  Sender: ABBVIE
  Company Number: BR-ABBVIE-6003076

PATIENT
  Sex: Female

DRUGS (1)
  1. RINVOQ [Suspect]
     Active Substance: UPADACITINIB
     Indication: Dermatitis atopic
     Dosage: FORM STRENGTH: 15 MILLIGRAM?LAST ADMIN DATE WAS 2024
     Route: 058
     Dates: start: 202403

REACTIONS (6)
  - Neuropathy peripheral [Unknown]
  - Syncope [Unknown]
  - Muscular weakness [Unknown]
  - Osteomyelitis viral [Unknown]
  - Dermatitis atopic [Unknown]
  - Headache [Unknown]

NARRATIVE: CASE EVENT DATE: 20240101
